FAERS Safety Report 23457386 (Version 4)
Quarter: 2025Q3

REPORT INFORMATION
  Report Type: Spontaneous
  Country: US (occurrence: US)
  Receive Date: 20240130
  Receipt Date: 20250905
  Transmission Date: 20251021
  Serious: No
  Sender: SANOFI AVENTIS
  Company Number: US-SA-SAC20240123000636

PATIENT
  Age: 75 Year
  Sex: Male

DRUGS (1)
  1. DUPIXENT [Suspect]
     Active Substance: DUPILUMAB
     Indication: Dermatitis allergic
     Dosage: 300MG, EVERY 2 WEEKS
     Route: 058
     Dates: start: 20220401

REACTIONS (4)
  - Pruritus [Not Recovered/Not Resolved]
  - Therapeutic response shortened [Unknown]
  - Vitamin D decreased [Recovering/Resolving]
  - Vitamin B12 decreased [Recovering/Resolving]
